FAERS Safety Report 5528700-0 (Version None)
Quarter: 2007Q4

REPORT INFORMATION
  Report Type: 
  Country: None (occurrence: None)
  Receive Date: 20071114
  Receipt Date: 20070905
  Transmission Date: 20080405
  Serious: Yes (Disabling)
  Sender: FDA-Public Use
  Company Number: WAES 0709USA00683

PATIENT
  Age: 50 Year
  Sex: Female

DRUGS (1)
  1. FOSAMAX PLUS D [Suspect]
     Indication: ARTHRITIS
     Dosage: 70MG/2800 IU/WKY/PO
     Route: 048
     Dates: start: 20070902

REACTIONS (4)
  - JOINT SWELLING [None]
  - OEDEMA PERIPHERAL [None]
  - OESOPHAGITIS [None]
  - OFF LABEL USE [None]
